FAERS Safety Report 8231745-3 (Version None)
Quarter: 2012Q1

REPORT INFORMATION
  Report Type: 
  Country: None (occurrence: None)
  Receive Date: 20120323
  Receipt Date: 20120312
  Transmission Date: 20120608
  Serious: Yes (Hospitalization)
  Sender: FDA-Public Use
  Company Number: KR-BRISTOL-MYERS SQUIBB COMPANY-16448904

PATIENT
  Age: 74 Year
  Sex: Male
  Weight: 59 kg

DRUGS (2)
  1. CISPLATIN [Suspect]
     Indication: MALIGNANT PLEURAL EFFUSION
     Dosage: 75MG/M SUP(2)/DAY OVER 1 DAY.
     Route: 042
  2. ETOPOSIDE [Suspect]
     Indication: MALIGNANT PLEURAL EFFUSION
     Dosage: 100MG/M SUP(2)/DAY OVER 3 DAYS.
     Route: 042

REACTIONS (2)
  - RENAL INFARCT [None]
  - AORTIC THROMBOSIS [None]
